FAERS Safety Report 17506245 (Version 1)
Quarter: 2020Q1

REPORT INFORMATION
  Report Type: Spontaneous
  Country: US (occurrence: US)
  Receive Date: 20200306
  Receipt Date: 20200306
  Transmission Date: 20200409
  Serious: No
  Sender: FDA-Public Use
  Company Number: US-ELI_LILLY_AND_COMPANY-US202002002886

PATIENT
  Age: 60 Year
  Sex: Male

DRUGS (4)
  1. NOVOLOG [Suspect]
     Active Substance: INSULIN ASPART
     Indication: TYPE 2 DIABETES MELLITUS
     Dosage: UNK UNK, UNKNOWN
     Route: 065
  2. HUMALOG [Suspect]
     Active Substance: INSULIN LISPRO
     Indication: TYPE 2 DIABETES MELLITUS
     Dosage: UNK UNK, PRN
     Route: 058
  3. LANTUS [Suspect]
     Active Substance: INSULIN GLARGINE
     Indication: TYPE 2 DIABETES MELLITUS
     Dosage: UNK UNK, UNKNOWN
     Route: 065
  4. HUMALOG MIX75/25 [Suspect]
     Active Substance: INSULIN LISPRO
     Indication: TYPE 2 DIABETES MELLITUS
     Dosage: 30 U, PRN
     Route: 058

REACTIONS (4)
  - Wrong product administered [Not Recovered/Not Resolved]
  - Sleep disorder due to general medical condition, insomnia type [Not Recovered/Not Resolved]
  - Blood glucose increased [Recovered/Resolved]
  - Fluid retention [Recovered/Resolved]

NARRATIVE: CASE EVENT DATE: 20200204
